FAERS Safety Report 4920049-X (Version None)
Quarter: 2006Q1

REPORT INFORMATION
  Report Type: 
  Country: None (occurrence: None)
  Receive Date: 20060217
  Receipt Date: 20060210
  Transmission Date: 20060701
  Serious: Yes (Hospitalization)
  Sender: FDA-Public Use
  Company Number: S06-USA-00517-01

PATIENT
  Age: 42 Year
  Sex: Male

DRUGS (5)
  1. LEXAPRO [Suspect]
     Indication: MAJOR DEPRESSION
     Dosage: 20 MG QD, PO
     Route: 048
     Dates: start: 20060126, end: 20060127
  2. LEXAPRO [Suspect]
     Indication: MAJOR DEPRESSION
     Dosage: 10 MG QD, PO
     Route: 048
     Dates: start: 20041101, end: 20060125
  3. LEXAPRO [Suspect]
     Indication: MAJOR DEPRESSION
     Dosage: 10 MG QD, PO
     Route: 048
     Dates: start: 20060128, end: 20060208
  4. LEXAPRO [Suspect]
     Indication: MAJOR DEPRESSION
     Dosage: 15 MG QD, PO
     Route: 048
     Dates: start: 20060209
  5. XANAX [Concomitant]

REACTIONS (1)
  - CONVULSION [None]
